FAERS Safety Report 4312315-6 (Version None)
Quarter: 2004Q1

REPORT INFORMATION
  Report Type: 
  Country: None (occurrence: None)
  Receive Date: 20040302
  Receipt Date: 20031104
  Transmission Date: 20041129
  Serious: No
  Sender: FDA-Public Use
  Company Number: 200327949BWH

PATIENT
  Age: 82 Year
  Sex: Male

DRUGS (6)
  1. LEVITRA [Suspect]
     Indication: ERECTILE DYSFUNCTION
     Dosage: 10 MG PRN ORAL
     Route: 048
     Dates: start: 20031001
  2. INSULIN [Concomitant]
  3. HUMULIN R [Concomitant]
  4. HUMULIN N [Concomitant]
  5. SYNTHROID [Concomitant]
  6. COZAAR [Concomitant]

REACTIONS (2)
  - BLOOD PRESSURE [None]
  - ERECTILE DYSFUNCTION [None]
